FAERS Safety Report 24152541 (Version 1)
Quarter: 2024Q3

REPORT INFORMATION
  Report Type: Spontaneous
  Country: GB (occurrence: GB)
  Receive Date: 20240730
  Receipt Date: 20240730
  Transmission Date: 20241017
  Serious: Yes (Hospitalization, Other)
  Sender: MERCK
  Company Number: GB-009507513-2407GBR013997

PATIENT
  Age: 46 Year
  Sex: Male

DRUGS (1)
  1. PEMBROLIZUMAB [Suspect]
     Active Substance: PEMBROLIZUMAB
     Indication: Clear cell renal cell carcinoma
     Dosage: UNK; THREE CYCLES

REACTIONS (2)
  - Acute kidney injury [Recovering/Resolving]
  - Nephritis [Recovering/Resolving]
